FAERS Safety Report 8922532 (Version 1)
Quarter: 2012Q4

REPORT INFORMATION
  Report Type: 
  Country: IT (occurrence: IT)
  Receive Date: 20121123
  Receipt Date: 20121123
  Transmission Date: 20130627
  Serious: Yes (Hospitalization)
  Sender: FDA-Public Use
  Company Number: IT-ROCHE-1159342

PATIENT
  Age: 45 Year
  Sex: Male

DRUGS (4)
  1. RIVOTRIL [Suspect]
     Indication: INTENTIONAL SELF-INJURY
     Route: 048
     Dates: start: 20121117, end: 20121117
  2. RIVOTRIL [Suspect]
     Route: 048
  3. DEPAKIN [Concomitant]
     Route: 048
  4. ABILIFY [Concomitant]
     Route: 048

REACTIONS (4)
  - Bradykinesia [Recovering/Resolving]
  - Hypotension [Recovered/Resolved]
  - Bradyphrenia [Recovering/Resolving]
  - Sopor [Recovering/Resolving]
